FAERS Safety Report 7069954-1 (Version None)
Quarter: 2010Q4

REPORT INFORMATION
  Report Type: 
  Country: None (occurrence: None)
  Receive Date: 20101028
  Receipt Date: 20100714
  Transmission Date: 20110411
  Serious: No
  Sender: FDA-Public Use
  Company Number: US-WYE-H16391810

PATIENT
  Age: 46 Year
  Sex: Male
  Weight: 90.8 kg

DRUGS (2)
  1. ADVIL [Suspect]
     Indication: BACK PAIN
     Dosage: ONE CAPLET X 1
     Route: 048
     Dates: start: 20100713
  2. ZYRTEC [Concomitant]

REACTIONS (2)
  - COELIAC DISEASE [None]
  - CONDITION AGGRAVATED [None]
